FAERS Safety Report 25016527 (Version 1)
Quarter: 2025Q1

REPORT INFORMATION
  Report Type: Spontaneous
  Country: BR (occurrence: BR)
  Receive Date: 20250227
  Receipt Date: 20250227
  Transmission Date: 20250408
  Serious: No
  Sender: ANI
  Company Number: BR-ANIPHARMA-015706

PATIENT
  Sex: Female
  Weight: 60 kg

DRUGS (2)
  1. FLUVOXAMINE [Suspect]
     Active Substance: FLUVOXAMINE
     Indication: Depression
     Route: 048
     Dates: start: 20250206
  2. FLUVOXAMINE [Suspect]
     Active Substance: FLUVOXAMINE
     Indication: Anxiety
     Route: 048
     Dates: start: 20250206

REACTIONS (3)
  - Malaise [Unknown]
  - Burning sensation [Unknown]
  - Dizziness [Unknown]
